FAERS Safety Report 20232940 (Version 1)
Quarter: 2021Q4

REPORT INFORMATION
  Report Type: Spontaneous
  Country: US (occurrence: None)
  Receive Date: 20211224
  Receipt Date: 20211224
  Transmission Date: 20220303
  Serious: No
  Sender: FDA-Public Use
  Company Number: None

PATIENT
  Age: 63 Year
  Sex: Female
  Weight: 99.7 kg

DRUGS (2)
  1. CYTARABINE [Suspect]
     Active Substance: CYTARABINE
     Dates: end: 20211119
  2. DAUNORUBICIN [Suspect]
     Active Substance: DAUNORUBICIN
     Dates: end: 20211115

REACTIONS (6)
  - Febrile neutropenia [None]
  - Pulmonary oedema [None]
  - Fatigue [None]
  - Vision blurred [None]
  - Vitreous haemorrhage [None]
  - Hypertension [None]

NARRATIVE: CASE EVENT DATE: 20211119
